FAERS Safety Report 22025143 (Version 1)
Quarter: 2023Q1

REPORT INFORMATION
  Report Type: Report from Study
  Country: CL (occurrence: CL)
  Receive Date: 20230223
  Receipt Date: 20230223
  Transmission Date: 20230417
  Serious: Yes (Hospitalization)
  Sender: FDA-Public Use
  Company Number: CL-JNJFOC-20230240417

PATIENT
  Age: 62 Year
  Sex: Female

DRUGS (1)
  1. SIMPONI [Suspect]
     Active Substance: GOLIMUMAB
     Indication: Rheumatoid arthritis
     Route: 058
     Dates: start: 20220330

REACTIONS (3)
  - Colonic abscess [Not Recovered/Not Resolved]
  - Crohn^s disease [Recovering/Resolving]
  - Rheumatoid arthritis [Recovering/Resolving]
